FAERS Safety Report 5289077-1 (Version None)
Quarter: 2007Q1

REPORT INFORMATION
  Report Type: 
  Country: None (occurrence: None)
  Receive Date: 20070122
  Receipt Date: 20060608
  Transmission Date: 20070707
  Serious: Yes (Other)
  Sender: FDA-Public Use
  Company Number: WAES 0606USA01659

PATIENT
  Age: 15 Year
  Sex: Female

DRUGS (1)
  1. STROMECTOL [Suspect]
     Indication: ACARODERMATITIS
     Dosage: 12 MG/1X/PO
     Route: 048
     Dates: start: 20060605, end: 20060605

REACTIONS (2)
  - RASH GENERALISED [None]
  - RASH PRURITIC [None]
